FAERS Safety Report 9234544 (Version 3)
Quarter: 2013Q2

REPORT INFORMATION
  Report Type: Spontaneous
  Country: US (occurrence: US)
  Receive Date: 20130416
  Receipt Date: 20130606
  Transmission Date: 20140414
  Serious: No
  Sender: FDA-Public Use
  Company Number: US-PFIZER INC-2013116079

PATIENT
  Age: 73 Year
  Sex: Male

DRUGS (11)
  1. SUTENT [Suspect]
     Indication: THYROID CANCER
     Dosage: UNK
     Dates: start: 200911
  2. SUTENT [Suspect]
     Dosage: 25 MG, 1X/DAY
     Route: 048
     Dates: start: 20120702, end: 20130314
  3. LEVOTHYROXINE SODIUM [Concomitant]
     Dosage: UNK
  4. AMLODIPINE BESILATE/BENAZEPRIL HYDROCHLORIDE [Concomitant]
  5. OMEPRAZOLE [Concomitant]
     Dosage: UNK
  6. LIPITOR [Concomitant]
     Dosage: UNK
  7. CARVEDILOL [Concomitant]
     Dosage: UNK
  8. HYDROCODONE W/ACETAMINOPHEN [Concomitant]
  9. ASPIR-81 [Concomitant]
  10. PRO-AIR [Concomitant]
     Dosage: UNK
  11. CALCIUM W/MAGNESIUM [Concomitant]

REACTIONS (3)
  - Disease progression [Unknown]
  - Thyroid cancer [Unknown]
  - Off label use [Unknown]
